FAERS Safety Report 20077051 (Version 1)
Quarter: 2021Q4

REPORT INFORMATION
  Report Type: Spontaneous
  Country: JP (occurrence: JP)
  Receive Date: 20211116
  Receipt Date: 20211116
  Transmission Date: 20220303
  Serious: Yes (Death, Other)
  Sender: FDA-Public Use
  Company Number: JP-ELI_LILLY_AND_COMPANY-JP202111005604

PATIENT
  Age: 75 Year
  Sex: Male

DRUGS (2)
  1. CYRAMZA [Suspect]
     Active Substance: RAMUCIRUMAB
     Indication: Lung neoplasm malignant
     Dosage: 10 MG/KG, 2/M
     Route: 042
     Dates: start: 20211004
  2. GEFITINIB [Concomitant]
     Active Substance: GEFITINIB
     Indication: Lung neoplasm malignant
     Dosage: 250 MG, DAILY
     Route: 048
     Dates: start: 20211004

REACTIONS (2)
  - Renal impairment [Fatal]
  - Malignant neoplasm progression [Unknown]
